FAERS Safety Report 5197694-2 (Version None)
Quarter: 2007Q1

REPORT INFORMATION
  Report Type: 
  Country: None (occurrence: None)
  Receive Date: 20070103
  Receipt Date: 20061222
  Transmission Date: 20070707
  Serious: Yes (Other)
  Sender: FDA-Public Use
  Company Number: US-PFIZER INC-2007000253

PATIENT
  Sex: Female

DRUGS (4)
  1. LYRICA [Suspect]
     Indication: NEUROPATHY PERIPHERAL
     Route: 048
  2. DOXEPIN HCL [Concomitant]
     Indication: SLEEP DISORDER
     Route: 048
  3. DIGOXIN [Concomitant]
     Indication: CARDIAC DISORDER
     Route: 048
  4. CELEBREX [Concomitant]
     Route: 048

REACTIONS (4)
  - BALANCE DISORDER [None]
  - CYSTITIS [None]
  - FALL [None]
  - SKIN LACERATION [None]
